FAERS Safety Report 8238373-4 (Version None)
Quarter: 2012Q1

REPORT INFORMATION
  Report Type: 
  Country: None (occurrence: None)
  Receive Date: 20120326
  Receipt Date: 20120308
  Transmission Date: 20120608
  Serious: Yes (Death)
  Sender: FDA-Public Use
  Company Number: DSA_55428_2012

PATIENT
  Age: 36 Year
  Sex: Female

DRUGS (9)
  1. ALPRAZOLAM [Suspect]
     Indication: PRODUCT USED FOR UNKNOWN INDICATION
     Dosage: 15 MG, 1 X NOT THE PRESCRIBED AMOUNT) (2 MG, QD, AT BEDTIME)
  2. MIDAZOLAM HCL [Suspect]
     Indication: PRODUCT USED FOR UNKNOWN INDICATION
     Dosage: 75 MG, 1 X NOT THE PRESCRIBED AMOUNT) (6 MG, AT BEDTIME)
  3. BROMAZEPAM (BROMAZEPAM) [Suspect]
     Indication: PRODUCT USED FOR UNKNOWN INDICATION
     Dosage: 60 MG 1X, NOT THE PRESCRIBED AMOUNT), (5 MG, QD, A BEDTIME)
  4. LORAZEPAM [Suspect]
     Indication: PRODUCT USED FOR UNKNOWN INDICATION
     Dosage: 10 MG, 1X, NOT THE PRESCRIBED AMOUNT), (1 MG, QD  AT BEDTIME)
  5. MOCLOBEMIDE (MOCLOBEMIDE) [Suspect]
     Indication: PRODUCT USED FOR UNKNOWN INDICATION
     Dosage: 4500 MG 1X, NOT THE PRESRIBED AMOUNT, (150 MG, TID)
  6. PROPRANOLOL [Suspect]
     Indication: PRODUCT USED FOR UNKNOWN INDICATION
     Dosage: 300 MG, 1 X NOT THE PRESCRIBED AMOUNT, (10 MG, TID)
  7. ESTAZOLAM [Suspect]
     Indication: PRODUCT USED FOR UNKNOWN INDICATION
     Dosage: 20 MG, 1 X, NOT THE PRESCRIBED AMOUNT (2 MG, QD, AT BEDTIME)
  8. MIDAZOLAM HCL [Suspect]
     Indication: PRODUCT USED FOR UNKNOWN INDICATION
     Dosage: 75 MG 1X, NOT THE PRESCRIBED AMOUNT, 7.5 MG QD, AT BEDTIME
  9. FLUOXETINE [Suspect]
     Indication: PRODUCT USED FOR UNKNOWN INDICATION
     Dosage: 200 MG, 1 X NOT THE PRESCRIBED AMOUNT), (20 MG, QD)

REACTIONS (36)
  - ANTIDEPRESSANT DRUG LEVEL BELOW THERAPEUTIC [None]
  - BLOOD PH DECREASED [None]
  - RESPIRATORY RATE INCREASED [None]
  - CHILLS [None]
  - SINUS TACHYCARDIA [None]
  - SHIFT TO THE LEFT [None]
  - VENTRICULAR ARRHYTHMIA [None]
  - RENAL FAILURE [None]
  - MULTIPLE DRUG OVERDOSE INTENTIONAL [None]
  - SEROTONIN SYNDROME [None]
  - PUPILLARY REFLEX IMPAIRED [None]
  - HYPOTENSION [None]
  - HYPERTONIA [None]
  - EXTENSOR PLANTAR RESPONSE [None]
  - PO2 DECREASED [None]
  - UNRESPONSIVE TO STIMULI [None]
  - MUSCLE RIGIDITY [None]
  - HYPERREFLEXIA [None]
  - HYPERTHERMIA [None]
  - COMA [None]
  - CIRCULATORY COLLAPSE [None]
  - COMPLETED SUICIDE [None]
  - LEUKOCYTOSIS [None]
  - BRADYCARDIA [None]
  - OXYGEN SATURATION DECREASED [None]
  - ELECTROCARDIOGRAM QRS COMPLEX PROLONGED [None]
  - ELECTROCARDIOGRAM QT PROLONGED [None]
  - ECCHYMOSIS [None]
  - DISSEMINATED INTRAVASCULAR COAGULATION [None]
  - MYDRIASIS [None]
  - HYPERHIDROSIS [None]
  - MUSCLE TWITCHING [None]
  - TREMOR [None]
  - MOUTH HAEMORRHAGE [None]
  - RHABDOMYOLYSIS [None]
  - BLOOD GLUCOSE INCREASED [None]
